FAERS Safety Report 20311645 (Version 1)
Quarter: 2022Q1

REPORT INFORMATION
  Report Type: Spontaneous
  Country: CA (occurrence: CA)
  Receive Date: 20220108
  Receipt Date: 20220108
  Transmission Date: 20220423
  Serious: Yes (Life-Threatening)
  Sender: FDA-Public Use
  Company Number: None

PATIENT
  Age: 10 Year
  Sex: Female
  Weight: 26 kg

DRUGS (38)
  1. BUSULFAN [Suspect]
     Active Substance: BUSULFAN
     Indication: Combined immunodeficiency
     Route: 042
  2. DOXORUBICIN [Suspect]
     Active Substance: DOXORUBICIN
     Indication: Epstein-Barr virus associated lymphoproliferative disorder
     Route: 042
  3. FLUDARABINE [Suspect]
     Active Substance: FLUDARABINE PHOSPHATE
     Indication: Combined immunodeficiency
     Route: 042
  4. VINCRISTINE SULFATE [Suspect]
     Active Substance: VINCRISTINE SULFATE
     Indication: Epstein-Barr virus associated lymphoproliferative disorder
     Route: 042
  5. THYMOCYTE IMMUNE GLOBULIN NOS [Suspect]
     Active Substance: THYMOCYTE IMMUNE GLOBULIN NOS
     Indication: Combined immunodeficiency
     Route: 042
  6. CYCLOPHOSPHAMIDE [Suspect]
     Active Substance: CYCLOPHOSPHAMIDE
     Indication: Epstein-Barr virus associated lymphoproliferative disorder
     Route: 042
  7. ACETAMINOPHEN [Concomitant]
     Active Substance: ACETAMINOPHEN
  8. ACYCLOVIR [Concomitant]
     Active Substance: ACYCLOVIR
  9. ALLOPURINOL [Concomitant]
     Active Substance: ALLOPURINOL
  10. AMLODIPINE [Concomitant]
     Active Substance: AMLODIPINE BESYLATE
  11. CALCIUM CARBONATE\CHOLECALCIFEROL [Concomitant]
     Active Substance: CALCIUM CARBONATE\CHOLECALCIFEROL
  12. CEFTAZIDIME PENTAHYDRATE [Concomitant]
     Active Substance: CEFTAZIDIME
  13. CHLORHEXIDINE [Concomitant]
     Active Substance: CHLORHEXIDINE
  14. CYCLOSPORINE [Concomitant]
     Active Substance: CYCLOSPORINE
  15. DEXAMETHASONE [Concomitant]
     Active Substance: DEXAMETHASONE
     Dosage: LIQUID INTRA-ARTICULAR
  16. DIMENHYDRINATE [Concomitant]
     Active Substance: DIMENHYDRINATE
     Dosage: LIQUID INTRAVENOUS
  17. DIPHENHYDRAMINE [Concomitant]
     Active Substance: DIPHENHYDRAMINE
  18. EUCERIN [Concomitant]
     Active Substance: ENSULIZOLE\EUCERIN\OCTINOXATE\OCTISALATE\TITANIUM DIOXIDE\ZINC OXIDE
  19. FAMOTIDINE [Concomitant]
     Active Substance: FAMOTIDINE
  20. FUROSEMIDE [Concomitant]
     Active Substance: FUROSEMIDE
  21. HYDROCORTISONE [Concomitant]
     Active Substance: HYDROCORTISONE
     Route: 030
  22. KETOCONAZOLE [Concomitant]
     Active Substance: KETOCONAZOLE
  23. LEVETIRACETAM [Concomitant]
     Active Substance: LEVETIRACETAM
  24. MAGNESIUM [Concomitant]
     Active Substance: MAGNESIUM
  25. METHYLPREDNISOLONE [Concomitant]
     Active Substance: METHYLPREDNISOLONE
  26. MYCAMINE [Concomitant]
     Active Substance: MICAFUNGIN SODIUM
     Route: 042
  27. MYCOPHENOLATE MOFETIL [Concomitant]
     Active Substance: MYCOPHENOLATE MOFETIL
  28. NITAZOXANIDE [Concomitant]
     Active Substance: NITAZOXANIDE
  29. ONDANSETRON [Concomitant]
     Active Substance: ONDANSETRON
  30. POTASSIUM [Concomitant]
     Active Substance: POTASSIUM
  31. PREDNISONE [Concomitant]
     Active Substance: PREDNISONE
  32. PROBENECID [Concomitant]
     Active Substance: PROBENECID
  33. RANITIDINE [Concomitant]
     Active Substance: RANITIDINE
  34. RITUXAN [Concomitant]
     Active Substance: RITUXIMAB
  35. SULFAMETHOXAZOLE\TRIMETHOPRIM [Concomitant]
     Active Substance: SULFAMETHOXAZOLE\TRIMETHOPRIM
  36. URSODIOL [Concomitant]
     Active Substance: URSODIOL
  37. VISTIDE [Concomitant]
     Active Substance: CIDOFOVIR
     Dosage: LIQUID INTRAVENOUS
  38. ZINC [Concomitant]
     Active Substance: ZINC

REACTIONS (2)
  - Aplastic anaemia [Recovered/Resolved]
  - Off label use [Unknown]
